FAERS Safety Report 9213893 (Version 1)
Quarter: 2013Q1

REPORT INFORMATION
  Report Type: Spontaneous
  Country: US (occurrence: None)
  Receive Date: 20120827
  Receipt Date: 20120827
  Transmission Date: 20140127
  Serious: No
  Sender: FDA-Public Use
  Company Number: 354760

PATIENT
  Age: 69 Year
  Sex: Male

DRUGS (1)
  1. VICTOZA ( LIRAGLUTIDE) SOLUTION FOR INJECTION, 6 MG/ML [Suspect]
     Indication: TYPE 2 DIABETES MELLITUS
     Route: 058
     Dates: start: 20120607

REACTIONS (5)
  - Asthenia [None]
  - Hyperhidrosis [None]
  - Fatigue [None]
  - Dizziness [None]
  - Blood glucose decreased [None]
